FAERS Safety Report 5114993-0 (Version None)
Quarter: 2006Q3

REPORT INFORMATION
  Report Type: 
  Country: None (occurrence: None)
  Receive Date: 20060925
  Receipt Date: 20060925
  Transmission Date: 20061208
  Serious: Yes (Hospitalization, Other)
  Sender: FDA-Public Use
  Company Number: None

PATIENT
  Age: 76 Year
  Sex: Male
  Weight: 94 kg

DRUGS (5)
  1. CUBICIN [Suspect]
     Indication: ENTEROCOCCAL INFECTION
     Dosage: 500 MG Q24H IV
     Route: 042
     Dates: start: 20060828, end: 20060912
  2. CUBICIN [Suspect]
     Indication: HIP ARTHROPLASTY
     Dosage: 500 MG Q24H IV
     Route: 042
     Dates: start: 20060828, end: 20060912
  3. CUBICIN [Suspect]
     Indication: POSTOPERATIVE WOUND INFECTION
     Dosage: 500 MG Q24H IV
     Route: 042
     Dates: start: 20060828, end: 20060912
  4. ZYVOX [Concomitant]
  5. UNASYN [Concomitant]

REACTIONS (6)
  - ANAEMIA [None]
  - ANISOCYTOSIS [None]
  - BLOOD CREATINE PHOSPHOKINASE INCREASED [None]
  - LEUKOCYTOSIS [None]
  - POIKILOCYTOSIS [None]
  - THROMBOCYTOPENIA [None]
